FAERS Safety Report 4920584-4 (Version None)
Quarter: 2006Q1

REPORT INFORMATION
  Report Type: 
  Country: None (occurrence: None)
  Receive Date: 20060113
  Receipt Date: 20051013
  Transmission Date: 20060701
  Serious: No
  Sender: FDA-Public Use
  Company Number: 2005SP003493

PATIENT
  Age: 51 Year
  Sex: Female

DRUGS (9)
  1. LUNESTA [Suspect]
     Indication: INSOMNIA
     Dosage: SEE IMAGE
     Route: 048
     Dates: start: 20051001, end: 20050101
  2. LUNESTA [Suspect]
     Indication: INSOMNIA
     Dosage: SEE IMAGE
     Route: 048
     Dates: start: 20050101
  3. KEPPRA [Concomitant]
  4. PREMPRO [Concomitant]
  5. NYSTATIN [Concomitant]
  6. DOXYCYCLINE [Concomitant]
  7. IBANDRONATE SODIUM [Concomitant]
  8. CALCIUM GLUCONATE [Concomitant]
  9. METHYLTESTOSTERONE [Concomitant]

REACTIONS (5)
  - ASTHENIA [None]
  - DRUG INEFFECTIVE [None]
  - DYSGEUSIA [None]
  - INSOMNIA [None]
  - NIGHTMARE [None]
